FAERS Safety Report 9530911 (Version 1)
Quarter: 2013Q3

REPORT INFORMATION
  Report Type: Spontaneous
  Country: US (occurrence: None)
  Receive Date: 20130916
  Receipt Date: 20130916
  Transmission Date: 20140515
  Serious: Yes (Other)
  Sender: FDA-Public Use
  Company Number: None

PATIENT
  Sex: Female

DRUGS (1)
  1. AXONA [Suspect]
     Dates: end: 20130810

REACTIONS (2)
  - Hallucination [None]
  - Logorrhoea [None]
